FAERS Safety Report 16353043 (Version 4)
Quarter: 2019Q2

REPORT INFORMATION
  Report Type: Spontaneous
  Country: HU (occurrence: HU)
  Receive Date: 20190524
  Receipt Date: 20190618
  Transmission Date: 20190711
  Serious: Yes (Hospitalization, Other)
  Sender: FDA-Public Use
  Company Number: HU-PFIZER INC-2019217827

PATIENT
  Age: 68 Year
  Sex: Male

DRUGS (45)
  1. BISOPROLOL [Suspect]
     Active Substance: BISOPROLOL
     Dosage: 2.5 MG, UNK (2X)
     Route: 065
     Dates: end: 201701
  2. CLOPAMIDE [Concomitant]
     Active Substance: CLOPAMIDE
     Dosage: 20 MG, QD (IN THE MORNING)
     Route: 065
  3. DIGOXIN. [Concomitant]
     Active Substance: DIGOXIN
     Dosage: 125 MG, QOD
     Route: 065
  4. INSULIN DEGLUDEC/LIRAGLUTIDE [Concomitant]
     Dosage: UNK
     Route: 065
  5. NIFEDIPIN [Concomitant]
     Active Substance: NIFEDIPINE
     Dosage: 10 MG, UNK (2X)
     Route: 065
     Dates: end: 201701
  6. METOPROLOL SUCCINATE. [Concomitant]
     Active Substance: METOPROLOL SUCCINATE
     Dosage: 50 MG, UNK (2X)
     Route: 065
  7. METOPROLOL SUCCINATE. [Concomitant]
     Active Substance: METOPROLOL SUCCINATE
     Dosage: 25 MG, UNK (2X)
     Route: 065
     Dates: start: 201701
  8. NITROGLYCERINE [Concomitant]
     Active Substance: NITROGLYCERIN
     Dosage: 5 MG, Q12H
     Route: 065
  9. THEOPHYLLINE [Concomitant]
     Active Substance: THEOPHYLLINE ANHYDROUS
     Dosage: 150 MG, UNK (2X)
     Route: 065
     Dates: end: 201701
  10. GLICLAZIDE [Suspect]
     Active Substance: GLICLAZIDE
     Dosage: 60 OT, UNK (1X)
     Route: 065
  11. CLOPAMIDE [Concomitant]
     Active Substance: CLOPAMIDE
     Dosage: 20 MG, QOD
     Route: 065
  12. TELMISARTAN. [Concomitant]
     Active Substance: TELMISARTAN
     Dosage: 80 MG, ONCE DAILY (IN THE MORNING)
     Route: 065
     Dates: start: 2018
  13. ETACRYNIC ACID [Concomitant]
     Active Substance: ETHACRYNIC ACID
     Dosage: UNK, QOD (50 MG PLUS 3 G)
     Route: 005
     Dates: start: 201701
  14. AMLODIPINE BESILATE [Suspect]
     Active Substance: AMLODIPINE BESYLATE
     Dosage: 5 MG, ONCE DAILY (IN THE EVENING)
     Route: 065
  15. AMLODIPINE BESILATE [Suspect]
     Active Substance: AMLODIPINE BESYLATE
     Dosage: 5 MG, UNK (2X)
     Route: 065
     Dates: end: 201701
  16. AMLODIPINE BESILATE [Suspect]
     Active Substance: AMLODIPINE BESYLATE
     Dosage: 10 MG, UNK (2X)
     Route: 065
     Dates: start: 201701
  17. PANTOPRAZOLE [Suspect]
     Active Substance: PANTOPRAZOLE
     Dosage: 40 MG, UNK (1X)
     Route: 065
  18. INDAPAMIDE. [Suspect]
     Active Substance: INDAPAMIDE
     Dosage: 1.5 MG, ONCE DAILY (IN THE MORNING)
     Route: 065
  19. TELMISARTAN. [Concomitant]
     Active Substance: TELMISARTAN
     Dosage: 80 MG, UNK (2X)
     Route: 065
  20. APIXABAN [Concomitant]
     Active Substance: APIXABAN
     Dosage: 2.5 MG, UNK (2X)
     Route: 065
  21. METOPROLOL TARTRATE. [Concomitant]
     Active Substance: METOPROLOL TARTRATE
     Dosage: 50 MG, ONCE DAILY (IN THE MORNING)
     Route: 065
     Dates: start: 2018
  22. ACETYLSALICYLIC ACID [Concomitant]
     Active Substance: ASPIRIN
     Dosage: 100 MG, UNK (1X)
     Route: 065
  23. DOXAZOSIN MESILATE [Suspect]
     Active Substance: DOXAZOSIN MESYLATE
     Dosage: 2 MG, UNK (2X)
     Route: 065
  24. FUROSEMIDE. [Concomitant]
     Active Substance: FUROSEMIDE
     Dosage: 40 MG, UNK (2X)
     Route: 065
  25. ALLOPURINOL. [Suspect]
     Active Substance: ALLOPURINOL
     Dosage: 300 MG, UNK (1X)
     Route: 065
  26. METFORMIN HYDROCHLORIDE. [Suspect]
     Active Substance: METFORMIN HYDROCHLORIDE
     Dosage: 1000 MG, UNK (2X)
     Route: 065
  27. METFORMIN HYDROCHLORIDE. [Suspect]
     Active Substance: METFORMIN HYDROCHLORIDE
     Dosage: 1000 MG, UNK (1X)
     Route: 065
  28. TRIMETAZIDINE [Suspect]
     Active Substance: TRIMETAZIDINE
     Dosage: 35 MG, UNK (2X)
     Route: 065
  29. PERINDOPRIL [Suspect]
     Active Substance: PERINDOPRIL
     Dosage: 5 MG, UNK (2X)
     Route: 065
     Dates: start: 201701
  30. ACENOCOUMAROL [Concomitant]
     Active Substance: ACENOCOUMAROL
     Dosage: UNK
     Route: 065
  31. APIXABAN [Concomitant]
     Active Substance: APIXABAN
     Dosage: 5 MG, UNK (2X)
     Route: 065
  32. ATORVASTATIN CALCIUM. [Suspect]
     Active Substance: ATORVASTATIN CALCIUM
     Dosage: 40 MG, ONCE DAILY (IN THE EVENING)
     Route: 065
  33. PANTOPRAZOLE [Suspect]
     Active Substance: PANTOPRAZOLE
     Dosage: 40 MG, UNK (2X)
     Route: 065
  34. RILMENIDINE [Concomitant]
     Active Substance: RILMENIDINE
     Dosage: 1 MG, UNK (1X)
     Route: 065
  35. APIXABAN [Concomitant]
     Active Substance: APIXABAN
     Dosage: 5 MG, UNK (2X)
     Route: 065
  36. INSULIN [Concomitant]
     Active Substance: INSULIN NOS
     Dosage: UNK
     Route: 065
  37. LISINOPRIL. [Suspect]
     Active Substance: LISINOPRIL
     Dosage: 10 MG, UNK (2X)
     Route: 065
     Dates: start: 2013, end: 201701
  38. FUROSEMIDE. [Concomitant]
     Active Substance: FUROSEMIDE
     Dosage: 80 MG, QOD
     Route: 065
     Dates: start: 201701
  39. DIGOXIN. [Concomitant]
     Active Substance: DIGOXIN
     Dosage: 125 MG, UNK (1X)
     Route: 065
  40. SPIRONOLACTONE. [Concomitant]
     Active Substance: SPIRONOLACTONE
     Dosage: 25 MG, UNK (1X)
     Route: 065
     Dates: start: 2018
  41. SPIRONOLACTONE. [Concomitant]
     Active Substance: SPIRONOLACTONE
     Dosage: 25 MG, ONCE DAILY (IN THE MORNING)
     Route: 065
  42. THIOCTIC ACID [Concomitant]
     Active Substance: THIOCTIC ACID
     Dosage: 600 MG, UNK (1X)
     Route: 065
  43. FUROSEMIDE. [Concomitant]
     Active Substance: FUROSEMIDE
     Dosage: 80 MG, QOD
     Route: 065
  44. RILMENIDINE [Concomitant]
     Active Substance: RILMENIDINE
     Dosage: 1 MG, UNK (2X)
     Route: 065
     Dates: start: 201701
  45. CLOPIDOGREL [Concomitant]
     Active Substance: CLOPIDOGREL BISULFATE
     Dosage: 75 MG, UNK (1X)
     Route: 065

REACTIONS (26)
  - Breath sounds abnormal [Recovering/Resolving]
  - Arrhythmia [Recovering/Resolving]
  - Peripheral swelling [Recovering/Resolving]
  - Hypokinesia [Unknown]
  - Gait disturbance [Recovering/Resolving]
  - Pneumonia [Unknown]
  - Ejection fraction decreased [Recovering/Resolving]
  - Dyspnoea [Recovering/Resolving]
  - Mitral valve incompetence [Recovering/Resolving]
  - Dyspnoea exertional [Recovering/Resolving]
  - Congestive cardiomyopathy [Recovering/Resolving]
  - Diverticulum intestinal haemorrhagic [Unknown]
  - Hypertension [Unknown]
  - Pulmonary hypertension [Recovering/Resolving]
  - Nocturia [Recovering/Resolving]
  - Fluid retention [Recovering/Resolving]
  - Weight increased [Recovered/Resolved]
  - Coronary artery stenosis [Recovering/Resolving]
  - Hepatomegaly [Unknown]
  - Diabetes mellitus [Unknown]
  - Pulmonary mass [Recovering/Resolving]
  - Ascites [Recovering/Resolving]
  - Atrial fibrillation [Recovering/Resolving]
  - Cardiac failure [Recovering/Resolving]
  - Tricuspid valve incompetence [Recovering/Resolving]
  - Cardiac murmur [Recovering/Resolving]

NARRATIVE: CASE EVENT DATE: 2000
